FAERS Safety Report 26082054 (Version 1)
Quarter: 2025Q4

REPORT INFORMATION
  Report Type: Spontaneous
  Country: US (occurrence: None)
  Receive Date: 20251121
  Receipt Date: 20251121
  Transmission Date: 20260117
  Serious: Yes (unspecified)
  Sender: FDA-CTU
  Company Number: None

PATIENT
  Age: 67 Year
  Sex: Male
  Weight: 82 kg

DRUGS (1)
  1. CEFTRIAXONE [Suspect]
     Active Substance: CEFTRIAXONE
     Dosage: 2 G GRAM(S) ONCE INTRAVENOUS DRIP
     Route: 041
     Dates: start: 20251113, end: 20251113

REACTIONS (5)
  - Unresponsive to stimuli [None]
  - Tachycardia [None]
  - Hypotension [None]
  - Rash [None]
  - Erythema [None]

NARRATIVE: CASE EVENT DATE: 20251113
